FAERS Safety Report 12937835 (Version 1)
Quarter: 2016Q4

REPORT INFORMATION
  Report Type: Report from Study
  Country: JP (occurrence: JP)
  Receive Date: 20161114
  Receipt Date: 20161114
  Transmission Date: 20170207
  Serious: Yes (Other)
  Sender: FDA-Public Use
  Company Number: JP-PFIZER INC-2016519016

PATIENT
  Age: 73 Year
  Sex: Male

DRUGS (24)
  1. ETHAMBUTOL HYDROCHLORIDE. [Concomitant]
     Active Substance: ETHAMBUTOL HYDROCHLORIDE
     Dosage: UNK
     Dates: end: 20150127
  2. ESOMEPRAZOLE MAGNESIUM. [Concomitant]
     Active Substance: ESOMEPRAZOLE MAGNESIUM
     Dosage: UNK
  3. LANTUS [Concomitant]
     Active Substance: INSULIN GLARGINE
     Dosage: UNK
  4. ISONIAZID. [Concomitant]
     Active Substance: ISONIAZID
     Dosage: UNK
     Dates: start: 2014, end: 2014
  5. CYCLOSERINE. [Concomitant]
     Active Substance: CYCLOSERINE
     Dosage: UNK
     Dates: start: 2014, end: 2014
  6. DELTYBA [Suspect]
     Active Substance: DELAMANID
     Indication: TUBERCULOSIS
     Dosage: 200 MG, DAILY
     Route: 048
     Dates: start: 20141216, end: 20150124
  7. ENVIOMYCIN SULFATE [Concomitant]
     Active Substance: ENVIOMYCIN SULFATE
     Dosage: 1 G, DAILY
     Dates: end: 20151219
  8. URSODEOXYCHOLIC ACID [Concomitant]
     Active Substance: URSODIOL
     Dosage: 100 MG, DAILY
  9. NAUZELIN [Concomitant]
     Active Substance: DOMPERIDONE
     Dosage: UNK
  10. TUBERMIN [Concomitant]
     Active Substance: ETHIONAMIDE
     Dosage: UNK
     Dates: start: 20150214
  11. NEOMALLERMIN TR [Concomitant]
     Dosage: UNK
  12. LEDERMYCIN [Concomitant]
     Dosage: UNK
     Dates: start: 20141230, end: 20150126
  13. VENAPASTA [Concomitant]
     Dosage: UNK
  14. NOVORAPID [Concomitant]
     Active Substance: INSULIN ASPART
     Dosage: UNK
  15. ZYVOX [Suspect]
     Active Substance: LINEZOLID
     Dosage: 300 MG, DAILY
     Route: 048
     Dates: end: 20150127
  16. DELTYBA [Suspect]
     Active Substance: DELAMANID
     Dosage: 200 MG, DAILY
     Route: 048
     Dates: start: 20150210
  17. ALUMINO-NIPPAS CALCIUM [Concomitant]
     Dosage: UNK
     Dates: end: 20150127
  18. FLIVAS [Concomitant]
     Active Substance: NAFTOPIDIL
     Dosage: UNK
  19. URITOS [Concomitant]
     Active Substance: IMIDAFENACIN
     Dosage: UNK
  20. LAMPREN [Concomitant]
     Active Substance: CLOFAZIMINE
     Dosage: UNK
     Dates: start: 2014, end: 2014
  21. MAGMITT [Concomitant]
     Active Substance: MAGNESIUM OXIDE
     Dosage: UNK
  22. ZYVOX [Suspect]
     Active Substance: LINEZOLID
     Indication: TUBERCULOSIS
     Dosage: UNK
     Dates: start: 2014, end: 2014
  23. THYRADIN S [Concomitant]
     Active Substance: LEVOTHYROXINE SODIUM
     Dosage: UNK
  24. FUROSEMIDE. [Concomitant]
     Active Substance: FUROSEMIDE
     Dosage: 20 MG, DAILY
     Dates: start: 20141204, end: 20150316

REACTIONS (5)
  - Decreased appetite [Recovered/Resolved]
  - Blood glucose increased [Unknown]
  - Lymphocyte count decreased [Unknown]
  - Electrocardiogram QT prolonged [Unknown]
  - Demyelination [Unknown]

NARRATIVE: CASE EVENT DATE: 20150124
